FAERS Safety Report 9023757 (Version 3)
Quarter: 2013Q1

REPORT INFORMATION
  Report Type: Spontaneous
  Country: US (occurrence: US)
  Receive Date: 20130121
  Receipt Date: 20130308
  Transmission Date: 20140127
  Serious: Yes (Other)
  Sender: FDA-Public Use
  Company Number: US-JNJFOC-20130107473

PATIENT
  Age: 56 None
  Sex: Female

DRUGS (1)
  1. BENADRYL [Suspect]
     Indication: URTICARIA
     Route: 048
     Dates: start: 20120624, end: 20120625

REACTIONS (6)
  - Loss of consciousness [Recovered/Resolved]
  - Asthenia [Recovered/Resolved]
  - Nausea [Recovered/Resolved]
  - Feeling abnormal [Recovered/Resolved]
  - Off label use [Unknown]
  - Vertigo [Recovered/Resolved]
